FAERS Safety Report 5414041-9 (Version None)
Quarter: 2007Q3

REPORT INFORMATION
  Report Type: 
  Country: None (occurrence: None)
  Receive Date: 20070814
  Receipt Date: 20070810
  Transmission Date: 20080115
  Serious: Yes (Other)
  Sender: FDA-Public Use
  Company Number: US-ASTRAZENECA-2007UW06776

PATIENT
  Age: 62 Year
  Sex: Female
  Weight: 65.8 kg

DRUGS (5)
  1. ARIMIDEX [Suspect]
     Indication: BREAST CANCER
     Route: 048
  2. FOSAMAX [Concomitant]
  3. MAGNESIUM SULFATE [Concomitant]
  4. MULTIVITAMIN [Concomitant]
  5. MOBIC [Concomitant]

REACTIONS (10)
  - ASTHENIA [None]
  - BONE PAIN [None]
  - C-REACTIVE PROTEIN INCREASED [None]
  - DEPRESSION [None]
  - INSOMNIA [None]
  - LOW DENSITY LIPOPROTEIN INCREASED [None]
  - MOOD SWINGS [None]
  - SKIN DISCOLOURATION [None]
  - TUMOUR MARKER INCREASED [None]
  - WEIGHT INCREASED [None]
